FAERS Safety Report 15825565 (Version 1)
Quarter: 2019Q1

REPORT INFORMATION
  Report Type: Report from Study
  Country: US (occurrence: US)
  Receive Date: 20190115
  Receipt Date: 20190115
  Transmission Date: 20190417
  Serious: Yes (Life-Threatening, Hospitalization, Other)
  Sender: FDA-Public Use
  Company Number: US-RECRO GAINESVILLE LLC-REPH-2019-000006

PATIENT
  Age: 42 Year
  Sex: Female

DRUGS (5)
  1. FIORICET [Concomitant]
     Active Substance: ACETAMINOPHEN\BUTALBITAL\CAFFEINE
     Indication: MIGRAINE
     Dosage: UNK
  2. VERAPAMIL HYDROCHLORIDE SUSTAINED RELEASE [Suspect]
     Active Substance: VERAPAMIL HYDROCHLORIDE
     Dosage: 120 MG, QD
     Route: 048
  3. AMITRIPTYLINE [Concomitant]
     Active Substance: AMITRIPTYLINE
     Dosage: UNK
  4. TOPIRAMATE. [Concomitant]
     Active Substance: TOPIRAMATE
     Dosage: UNK
  5. SUMATRIPTAN. [Concomitant]
     Active Substance: SUMATRIPTAN
     Dosage: UNK

REACTIONS (13)
  - Atrioventricular block complete [Recovered/Resolved]
  - Rhythm idioventricular [Recovered/Resolved]
  - Hypotension [Recovered/Resolved]
  - Respiratory failure [Recovered/Resolved]
  - Toxicity to various agents [Recovered/Resolved]
  - Headache [Recovered/Resolved]
  - Accidental overdose [Recovered/Resolved]
  - Off label use [Recovered/Resolved]
  - Depressed level of consciousness [Recovered/Resolved]
  - Palpitations [Recovered/Resolved]
  - Hyperglycaemia [Recovered/Resolved]
  - Metabolic acidosis [Recovered/Resolved]
  - Labelled drug-food interaction medication error [Recovered/Resolved]
